FAERS Safety Report 7918847-3 (Version None)
Quarter: 2011Q4

REPORT INFORMATION
  Report Type: 
  Country: None (occurrence: None)
  Receive Date: 20111116
  Receipt Date: 20111108
  Transmission Date: 20120403
  Serious: Yes (Hospitalization)
  Sender: FDA-Public Use
  Company Number: PHHY2011DK098350

PATIENT
  Sex: Female
  Weight: 52 kg

DRUGS (1)
  1. CITALOPRAM HYDROBROMIDE [Suspect]
     Indication: ANXIETY
     Dosage: 20 MG, QD
     Route: 048
     Dates: start: 20100401, end: 20100701

REACTIONS (4)
  - PREMATURE LABOUR [None]
  - LOCALISED INTRAABDOMINAL FLUID COLLECTION [None]
  - AMNIOTIC FLUID VOLUME INCREASED [None]
  - MATERNAL EXPOSURE DURING PREGNANCY [None]
